FAERS Safety Report 6336482-8 (Version None)
Quarter: 2009Q3

REPORT INFORMATION
  Report Type: 
  Country: None (occurrence: None)
  Receive Date: 20090901
  Receipt Date: 20090824
  Transmission Date: 20100115
  Serious: Yes (Other)
  Sender: FDA-Public Use
  Company Number: B0577702A

PATIENT
  Sex: Female

DRUGS (6)
  1. ZANTAC [Suspect]
     Indication: PREMEDICATION
     Dosage: 2ML PER DAY
     Route: 042
     Dates: start: 20090604, end: 20090604
  2. DECADRON [Suspect]
     Indication: PREMEDICATION
     Dosage: 2.5ML PER DAY
     Route: 065
     Dates: start: 20090604, end: 20090604
  3. FERROMIA [Concomitant]
     Dosage: 200MG PER DAY
     Route: 048
     Dates: start: 20071127
  4. METHYCOBAL [Concomitant]
     Dosage: 4500MCG PER DAY
     Route: 048
     Dates: start: 20071126
  5. FUROSEMIDE [Concomitant]
     Dosage: 40MG PER DAY
     Route: 048
     Dates: start: 20071112
  6. SOLDEM 3A [Concomitant]
     Indication: FLUID REPLACEMENT
     Dosage: 200ML PER DAY
     Route: 042
     Dates: start: 20090604, end: 20090604

REACTIONS (4)
  - ANAPHYLACTIC REACTION [None]
  - BLOOD PRESSURE DECREASED [None]
  - DIZZINESS [None]
  - OXYGEN SATURATION DECREASED [None]
